FAERS Safety Report 9429173 (Version 2)
Quarter: 2014Q1

REPORT INFORMATION
  Report Type: Spontaneous
  Country: US (occurrence: US)
  Receive Date: 20130730
  Receipt Date: 20140120
  Transmission Date: 20141002
  Serious: No
  Sender: FDA-Public Use
  Company Number: US-B.I. PHARMACEUTICALS,INC./RIDGEFIELD-2013-BI-21873BP

PATIENT
  Age: 76 Year
  Sex: Female

DRUGS (2)
  1. COMBIVENT [Suspect]
     Indication: IDIOPATHIC PULMONARY FIBROSIS
     Dosage: STRENGTH: 20 MCG / 100 MCG; DAILY DOSE: 80 MCG/400 MCG
     Route: 055
     Dates: start: 201303
  2. PLAVIX [Concomitant]
     Indication: CARDIAC DISORDER
     Dates: start: 201303

REACTIONS (4)
  - Headache [Not Recovered/Not Resolved]
  - Epistaxis [Recovered/Resolved]
  - Off label use [Not Recovered/Not Resolved]
  - Product quality issue [Not Recovered/Not Resolved]
